FAERS Safety Report 22280998 (Version 1)
Quarter: 2023Q2

REPORT INFORMATION
  Report Type: Spontaneous
  Country: US (occurrence: US)
  Receive Date: 20230504
  Receipt Date: 20230504
  Transmission Date: 20230722
  Serious: No
  Sender: FDA-Public Use
  Company Number: US-ALKERMES INC.-ALK-2023-001857

PATIENT
  Age: 32 Year
  Sex: Male
  Weight: 61.224 kg

DRUGS (4)
  1. VIVITROL [Suspect]
     Active Substance: NALTREXONE
     Indication: Alcoholism
     Dosage: 380 MILLIGRAM, QMO
     Route: 030
     Dates: start: 20230501, end: 20230501
  2. VIVITROL [Suspect]
     Active Substance: NALTREXONE
     Indication: Drug abuse
  3. VIVITROL [Suspect]
     Active Substance: NALTREXONE
     Indication: Tobacco abuse
  4. UNSPECIFIED INGREDIENT [Concomitant]
     Active Substance: UNSPECIFIED INGREDIENT
     Indication: Product used for unknown indication
     Dosage: UNK
     Route: 065

REACTIONS (9)
  - Product administered by wrong person [Unknown]
  - Product administered at inappropriate site [Unknown]
  - Incorrect dose administered [Unknown]
  - Off label use [Not Recovered/Not Resolved]
  - Wrong technique in device usage process [Unknown]
  - Product preparation error [Unknown]
  - Injection site reaction [Unknown]
  - Injection site pain [Unknown]
  - Needle issue [Recovered/Resolved]

NARRATIVE: CASE EVENT DATE: 20230501
